FAERS Safety Report 8521701-X (Version None)
Quarter: 2012Q3

REPORT INFORMATION
  Report Type: 
  Country: None (occurrence: None)
  Receive Date: 20120719
  Receipt Date: 20120717
  Transmission Date: 20120928
  Serious: Yes (Hospitalization, Other)
  Sender: FDA-Public Use
  Company Number: PHEH2012US013096

PATIENT
  Age: 83 Year
  Sex: Female

DRUGS (7)
  1. OMEPRAZOLE [Concomitant]
     Dosage: 20 MG, QD
     Route: 048
  2. TASIGNA [Suspect]
     Dosage: 400 MG, QD
     Route: 048
     Dates: start: 20120707
  3. TASIGNA [Suspect]
     Indication: CHRONIC MYELOID LEUKAEMIA
     Dosage: 400 MG, BID
     Route: 048
     Dates: start: 20120622, end: 20120628
  4. ASPIRIN [Concomitant]
     Dosage: 81 MG, QD
     Route: 048
  5. TORSEMIDE [Concomitant]
     Dosage: 10 MG, QD
     Route: 048
  6. AMLODIPINE [Concomitant]
     Dosage: 5 MG, QD
     Route: 048
  7. SIMVASTATIN [Concomitant]
     Dosage: 20 MG, QD
     Route: 048

REACTIONS (1)
  - PANCREATITIS ACUTE [None]
